FAERS Safety Report 9205762 (Version 1)
Quarter: 2013Q2

REPORT INFORMATION
  Report Type: Spontaneous
  Country: NL (occurrence: None)
  Receive Date: 20130401
  Receipt Date: 20130401
  Transmission Date: 20140414
  Serious: Yes (Death)
  Sender: FDA-Public Use
  Company Number: 1647091

PATIENT
  Age: 53 Year
  Sex: Female

DRUGS (5)
  1. GEMCITABINE HYDROCHLORIDE [Suspect]
     Indication: INVASIVE DUCTAL BREAST CARCINOMA
     Dosage: 12 MG/M2 MILLIGRAM(S) SQ. METER (UNKNOWN)
  2. GEMCITABINE HYDROCHLORIDE [Suspect]
     Indication: METASTASIS
     Dosage: 12 MG/M2 MILLIGRAM(S) SQ. METER (UNKNOWN)
  3. THERAPEUTIC RADIOPHARMACEUTICALS [Concomitant]
  4. CHEMOTHERAPEUTICS [Concomitant]
  5. HORMONES [Concomitant]

REACTIONS (10)
  - Thrombotic microangiopathy [None]
  - Pyrexia [None]
  - Hypertension [None]
  - Hypercalcaemia [None]
  - Coombs negative haemolytic anaemia [None]
  - Haemorrhage [None]
  - Haemorrhagic cerebral infarction [None]
  - Shock [None]
  - Hepatic necrosis [None]
  - Renal tubular necrosis [None]
